FAERS Safety Report 9490671 (Version 2)
Quarter: 2013Q3

REPORT INFORMATION
  Report Type: Spontaneous
  Country: GB (occurrence: None)
  Receive Date: 20130826
  Receipt Date: 20130909
  Transmission Date: 20140515
  Serious: Yes (Hospitalization, Other)
  Sender: FDA-Public Use
  Company Number: AUR-APL-2013-06915

PATIENT
  Age: 15 Year
  Sex: 0

DRUGS (2)
  1. OLANZAPINE [Suspect]
     Indication: PSYCHOTIC DISORDER
     Dosage: 5 MG TO 15 MG ONCE A DAY
     Dates: start: 201212, end: 20130730
  2. XEPLION [Suspect]
     Indication: PSYCHOTIC DISORDER
     Dosage: 1 IN 3 WEEK
     Route: 030
     Dates: start: 201212, end: 20130815

REACTIONS (2)
  - Inappropriate schedule of drug administration [None]
  - Glycosylated haemoglobin increased [None]
